FAERS Safety Report 4278467-1 (Version None)
Quarter: 2004Q1

REPORT INFORMATION
  Report Type: 
  Country: None (occurrence: None)
  Receive Date: 20040123
  Receipt Date: 20040113
  Transmission Date: 20041129
  Serious: Yes (Hospitalization, Other)
  Sender: FDA-Public Use
  Company Number: WAES 0401ESP00010

PATIENT
  Age: 74 Year
  Sex: Male

DRUGS (1)
  1. INDOMETHACIN [Suspect]
     Indication: DRESSLER'S SYNDROME
     Route: 048
     Dates: start: 20020601

REACTIONS (10)
  - ABDOMINAL WALL ABSCESS [None]
  - HAEMODYNAMIC INSTABILITY [None]
  - HYPOTENSION [None]
  - ILEAL PERFORATION [None]
  - PERITONITIS [None]
  - PNEUMOPERITONEUM [None]
  - POST PROCEDURAL COMPLICATION [None]
  - SEPSIS [None]
  - ULCER [None]
  - VOMITING [None]
